FAERS Safety Report 4481094-4 (Version None)
Quarter: 2004Q4

REPORT INFORMATION
  Report Type: 
  Country: None (occurrence: None)
  Receive Date: 20040923
  Receipt Date: 20040714
  Transmission Date: 20050328
  Serious: No
  Sender: FDA-Public Use
  Company Number: USA040258357

PATIENT
  Age: 79 Year
  Sex: Female
  Weight: 73 kg

DRUGS (6)
  1. FORTEO [Suspect]
     Indication: OSTEOPOROSIS
     Dosage: 20 UG/1 DAY
     Dates: start: 20030401
  2. CALCIUM [Concomitant]
  3. SYNTHROID [Concomitant]
  4. PREDNISONE [Concomitant]
  5. NEXIUM [Concomitant]
  6. SINGULAIR [Concomitant]

REACTIONS (3)
  - BONE DENSITY DECREASED [None]
  - NAUSEA [None]
  - SINUSITIS [None]
